FAERS Safety Report 20952790 (Version 2)
Quarter: 2022Q3

REPORT INFORMATION
  Report Type: Spontaneous
  Country: PA (occurrence: PA)
  Receive Date: 20220613
  Receipt Date: 20220720
  Transmission Date: 20221027
  Serious: Yes (Disabling, Other)
  Sender: FDA-Public Use
  Company Number: PA-ABBOTT-2022A-1349707

PATIENT
  Age: 17 Year
  Sex: Female

DRUGS (8)
  1. EPIVAL [Suspect]
     Active Substance: DIVALPROEX SODIUM
     Indication: Epilepsy
     Route: 048
     Dates: start: 20220421, end: 20220526
  2. EPIVAL [Suspect]
     Active Substance: DIVALPROEX SODIUM
     Dosage: DAILY DOSE: UNKNOWN; EVERY 12 HOURS
     Route: 048
     Dates: start: 20220526, end: 20220610
  3. DEPO-PROVERA [Concomitant]
     Active Substance: MEDROXYPROGESTERONE ACETATE
     Indication: Polycystic ovaries
  4. DEPO-PROVERA [Concomitant]
     Active Substance: MEDROXYPROGESTERONE ACETATE
     Indication: Anovulatory cycle
  5. LEVETIRACETAM [Concomitant]
     Active Substance: LEVETIRACETAM
     Indication: Product used for unknown indication
     Dosage: DAILY DOSE: UNKNOWN; EVERY 12 HOURS
     Route: 048
  6. CLONAZEPAM [Concomitant]
     Active Substance: CLONAZEPAM
     Indication: Product used for unknown indication
     Dosage: DAILY DOSE: 9 DROPS; 3 DROPS AM AND 6 DROPS PM
  7. CLOBAZAM [Concomitant]
     Active Substance: CLOBAZAM
     Indication: Product used for unknown indication
     Dosage: DAILY DOSE: UNKNOWN; EVERY 12 HOURS
  8. LAMOTRIGINE [Concomitant]
     Active Substance: LAMOTRIGINE
     Indication: Product used for unknown indication
     Dosage: DAILY DOSE: UNKNOWN; EVERY 12 HOURS

REACTIONS (3)
  - Musculoskeletal stiffness [Unknown]
  - Parkinsonism [Not Recovered/Not Resolved]
  - Dyskinesia [Unknown]

NARRATIVE: CASE EVENT DATE: 20220526
